FAERS Safety Report 4909621-0 (Version None)
Quarter: 2006Q1

REPORT INFORMATION
  Report Type: 
  Country: None (occurrence: None)
  Receive Date: 20060213
  Receipt Date: 20050621
  Transmission Date: 20060701
  Serious: Yes (Hospitalization, Other)
  Sender: FDA-Public Use
  Company Number: US-MERCK-0506USA03184

PATIENT
  Age: 55 Year
  Sex: Male
  Weight: 105 kg

DRUGS (3)
  1. VIOXX [Suspect]
     Route: 048
     Dates: start: 20000101, end: 20020801
  2. VIOXX [Suspect]
     Route: 048
     Dates: start: 20020801
  3. LASIX [Concomitant]
     Route: 048

REACTIONS (22)
  - AORTIC VALVE DISEASE MIXED [None]
  - AORTIC VALVE INCOMPETENCE [None]
  - AORTIC VALVE STENOSIS [None]
  - BACK DISORDER [None]
  - CAROTID ARTERY STENOSIS [None]
  - CEREBROVASCULAR ACCIDENT [None]
  - DIABETES MELLITUS NON-INSULIN-DEPENDENT [None]
  - DIABETIC NEUROPATHY [None]
  - GASTROINTESTINAL NEOPLASM [None]
  - HELICOBACTER INFECTION [None]
  - HYPERTENSION [None]
  - HYPERTENSIVE HEART DISEASE [None]
  - INGROWING NAIL [None]
  - ISCHAEMIC STROKE [None]
  - LUMBAR RADICULOPATHY [None]
  - MENISCUS LESION [None]
  - MITRAL VALVE INCOMPETENCE [None]
  - MYOCARDIAL INFARCTION [None]
  - PARAESTHESIA [None]
  - RHONCHI [None]
  - TREATMENT NONCOMPLIANCE [None]
  - VENTRICULAR HYPERTROPHY [None]
